FAERS Safety Report 26152868 (Version 1)
Quarter: 2025Q4

REPORT INFORMATION
  Report Type: Report from Study
  Country: US (occurrence: US)
  Receive Date: 20251214
  Receipt Date: 20251214
  Transmission Date: 20260118
  Serious: Yes (Life-Threatening, Hospitalization)
  Sender: LGM PHARMA SOLUTIONS, LLC
  Company Number: US-LGM Pharma Solutions, LLC-2190530

PATIENT
  Age: 27 Year
  Sex: Female

DRUGS (1)
  1. GLYCOPYRROLATE [Suspect]
     Active Substance: GLYCOPYRROLATE
     Indication: Sinus bradycardia

REACTIONS (4)
  - Tachycardia [Recovering/Resolving]
  - Sinus bradycardia [Recovered/Resolved]
  - Stress cardiomyopathy [Recovering/Resolving]
  - Cardiac arrest [Recovered/Resolved]
